FAERS Safety Report 17099884 (Version 3)
Quarter: 2019Q4

REPORT INFORMATION
  Report Type: Report from Study
  Country: ES (occurrence: ES)
  Receive Date: 20191202
  Receipt Date: 20191226
  Transmission Date: 20200122
  Serious: Yes (Other)
  Sender: FDA-Public Use
  Company Number: ES-ROCHE-2321521

PATIENT
  Age: 57 Year
  Sex: Male
  Weight: 83 kg

DRUGS (24)
  1. PLACEBO [Suspect]
     Active Substance: UNSPECIFIED INGREDIENT
     Indication: MALIGNANT MELANOMA
     Dosage: DATE OF MOST RECENT DOSE OF BLINDED ATEZOLIZUMAB PRIOR TO AE ONSET: 07/JUN/2018
     Route: 042
     Dates: start: 20170914
  2. LEVOFLOXACINO [LEVOFLOXACIN] [Concomitant]
     Active Substance: LEVOFLOXACIN
     Indication: NEUTROPHILIC DERMATOSIS
     Route: 048
     Dates: start: 20180328
  3. TRIMETHOPRIM. [Concomitant]
     Active Substance: TRIMETHOPRIM
     Indication: DIARRHOEA
     Route: 048
     Dates: start: 20190508
  4. VEMURAFENIB. [Suspect]
     Active Substance: VEMURAFENIB
     Indication: MALIGNANT MELANOMA
     Dosage: DATE OF MOST RECENT DOSE OF VEMURAFENIB PRIOR TO THE ONSET OF FIRST OCCURRENCE OF NEPHRITIS: 21/JUN/
     Route: 048
     Dates: start: 20170818
  5. AMOXICILINA [AMOXICILLIN] [Concomitant]
     Indication: RASH
     Route: 048
     Dates: start: 20190930, end: 20191007
  6. COBIMETINIB. [Suspect]
     Active Substance: COBIMETINIB
     Indication: MALIGNANT MELANOMA
     Dosage: DATE OF MOST RECENT DOSE OF COBIMETINIB PRIOR TO THE ONSET OF FIRST OCCURRENCE OF NEPHRITIS: 21/JUN/
     Route: 048
     Dates: start: 20170818
  7. LEVOFLOXACINO [LEVOFLOXACIN] [Concomitant]
     Active Substance: LEVOFLOXACIN
     Route: 048
     Dates: start: 20191029
  8. ROSUVASTATINA [ROSUVASTATIN] [Concomitant]
     Active Substance: ROSUVASTATIN
     Indication: HYPERCHOLESTEROLAEMIA
     Route: 048
     Dates: start: 20190213
  9. RANITIDINA [RANITIDINE] [Concomitant]
     Active Substance: RANITIDINE
     Indication: ANAPHYLACTIC REACTION
     Route: 065
     Dates: start: 20190402, end: 20190402
  10. SULFAMETHOXAZOLE [Concomitant]
     Active Substance: SULFAMETHOXAZOLE
     Indication: DIARRHOEA
     Route: 048
     Dates: start: 20190508
  11. LEVOFLOXACINO [LEVOFLOXACIN] [Concomitant]
     Active Substance: LEVOFLOXACIN
     Indication: UPPER RESPIRATORY TRACT INFECTION
     Route: 048
     Dates: start: 20190106, end: 20190113
  12. PHOSPHORIC ACID [Concomitant]
     Active Substance: PHOSPHORIC ACID
     Indication: BLOOD PHOSPHORUS
     Route: 048
     Dates: start: 20180607
  13. TRIMETHOPRIM. [Concomitant]
     Active Substance: TRIMETHOPRIM
     Indication: PROPHYLAXIS
     Route: 048
     Dates: start: 20191029
  14. SULFAMETHOXAZOLE [Concomitant]
     Active Substance: SULFAMETHOXAZOLE
     Indication: PROPHYLAXIS
     Route: 048
     Dates: start: 20191029
  15. ACIDO CLAVULANICO [Concomitant]
     Indication: RASH
     Route: 048
     Dates: start: 20190930, end: 20191007
  16. TRAJENTA [Concomitant]
     Active Substance: LINAGLIPTIN
     Indication: DIABETES MELLITUS
     Route: 048
  17. CLINDAMICINA [CLINDAMYCIN] [Concomitant]
     Indication: LYMPHOEDEMA
     Route: 048
     Dates: start: 20190106, end: 20190113
  18. INSULIN [Concomitant]
     Active Substance: INSULIN NOS
     Indication: BLOOD GLUCOSE INCREASED
     Route: 058
     Dates: start: 20190530
  19. CLOVATE [CLOBETASOL PROPIONATE] [Concomitant]
     Active Substance: CLOBETASOL PROPIONATE
     Indication: RASH
     Route: 061
     Dates: start: 20190930, end: 20191007
  20. VALSARTAN. [Concomitant]
     Active Substance: VALSARTAN
     Indication: HYPERTENSION
     Route: 048
     Dates: start: 20171010
  21. PREDNISONA [Concomitant]
     Active Substance: PREDNISONE
     Indication: NEUTROPHILIC DERMATOSIS
     Route: 048
     Dates: start: 20180422
  22. IBUPROFENO [Concomitant]
     Active Substance: IBUPROFEN
     Indication: PYREXIA
     Route: 048
     Dates: start: 20190103, end: 20190103
  23. URBASON [METHYLPREDNISOLONE] [Concomitant]
     Active Substance: METHYLPREDNISOLONE
     Indication: ANAPHYLACTIC REACTION
     Route: 042
     Dates: start: 20190402, end: 20190402
  24. POLARAMINE [Concomitant]
     Active Substance: DEXCHLORPHENIRAMINE MALEATE
     Indication: ANAPHYLACTIC REACTION
     Route: 065
     Dates: start: 20190402, end: 20190402

REACTIONS (3)
  - Nephritis [Recovered/Resolved]
  - Nephritis [Recovered/Resolved]
  - Nephritis [Recovering/Resolving]

NARRATIVE: CASE EVENT DATE: 20180621
